FAERS Safety Report 23802395 (Version 1)
Quarter: 2024Q2

REPORT INFORMATION
  Report Type: Report from Study
  Country: US (occurrence: US)
  Receive Date: 20240501
  Receipt Date: 20240501
  Transmission Date: 20240716
  Serious: Yes (Other)
  Sender: FDA-Public Use
  Company Number: US-ABBVIE-5737786

PATIENT
  Age: 71 Year
  Sex: Female

DRUGS (24)
  1. VENCLEXTA [Suspect]
     Active Substance: VENETOCLAX
     Indication: Acute myeloid leukaemia
     Dosage: TAKE 4 TABLET ORALLY DAILY TOTAL 400 MG (400 MG ORALLY EVERY 7 DAYS. TAKE WITH A MEAL)?FORM STREN...
     Route: 048
  2. METOPROLOL [Concomitant]
     Active Substance: METOPROLOL
     Indication: Product used for unknown indication
     Dosage: FORM STRENGTH: 100 MILLIGRAM
     Route: 048
  3. VALIUM [Concomitant]
     Active Substance: DIAZEPAM
     Indication: Vertigo
     Dosage: 1 TABLET ORALLY 2 TIMES PER DAY AS NEEDED FOR VERTIGO?FORM STRENGTH: 5 MILLIGRAM
     Route: 048
  4. ASPIRIN [Concomitant]
     Active Substance: ASPIRIN
     Indication: Product used for unknown indication
     Dosage: 1 CAPSULE ORALLY 2 TIMES PER DAY.?FORM STRENGTH: 0.5 MILLIGRAM
     Route: 048
  5. ASPIRIN [Concomitant]
     Active Substance: ASPIRIN
     Indication: Product used for unknown indication
     Dates: start: 202404
  6. ATORVASTATIN [Concomitant]
     Active Substance: ATORVASTATIN
     Indication: Product used for unknown indication
     Dosage: FORM STRENGTH: 40 MILLIGRAM
     Route: 048
  7. METHYLPREDNISOLONE [Concomitant]
     Active Substance: METHYLPREDNISOLONE
     Indication: Hypersensitivity
     Dosage: 125 MG INTRAVENOUSLY AS NEEDED FOR HYPERSENSITIVITY REACTION.?FORM STRENGTH: 125 MILLIGRAM
     Route: 042
  8. DECITABINE [Concomitant]
     Active Substance: DECITABINE
     Indication: Acute myeloid leukaemia
     Dosage: WEEKLY Q28D CYCLE LENGTH: 28 NUMBER CYCLES: 6 START: C1D1 ON 15-JAN-2024 ASSOC?FORM STRENGTH: 10 ...
     Route: 042
  9. HYDROCORTISONE [Concomitant]
     Active Substance: HYDROCORTISONE
     Indication: Hypersensitivity
     Dosage: FORM STRENGTH: 100 MILLIGRAM
     Route: 042
  10. XANAX [Concomitant]
     Active Substance: ALPRAZOLAM
     Indication: Anxiety
     Dosage: 1 TABLET ORALLY EVERY DAY AT BEDTIME AS NEEDED FOR ANXIETY?FORM STRENGTH: 0.5 MILLIGRAM
     Route: 048
  11. GABAPENTIN [Concomitant]
     Active Substance: GABAPENTIN
     Indication: Product used for unknown indication
     Dosage: TIME INTERVAL: 0.33333333 DAYS: 4 CAPSULE ORALLY 3 TIMES PER DAY. INSTRUCTIONS TO PHARMACIST: PT ...
     Route: 048
  12. TRIAMCINOLONE [Concomitant]
     Active Substance: TRIAMCINOLONE
     Indication: Product used for unknown indication
     Dosage: TOPICAL CREAM 0.1 % 1 APPLICATION TOPICALLY 2 PER DAY.?FORM STRENGTH: 0.1 %
     Route: 061
  13. ANAGRELIDE [Concomitant]
     Active Substance: ANAGRELIDE
     Indication: Product used for unknown indication
     Dosage: FORM STRENGTH: 0.5 MILLIGRAM
     Route: 048
  14. DEXAMETHASONE [Concomitant]
     Active Substance: DEXAMETHASONE
     Indication: Product used for unknown indication
     Dosage: ORAL LIQUID 0.5 MG/5 ML ELIXIR, 10 ML ORALLY EVERY 12 HOURS. DISPENSE: 1000 MILLILITER
     Route: 048
  15. IBUPROFEN [Concomitant]
     Active Substance: IBUPROFEN
     Indication: Product used for unknown indication
     Dosage: IBUPROFEN?FORM STRENGTH: 800 MILLIGRAM
     Route: 048
  16. FAMOTIDINE [Concomitant]
     Active Substance: FAMOTIDINE
     Indication: Hypersensitivity
     Dosage: 20 MG INTRAVENOUSLY AS NEEDED TOR HYPERSENSITIVITY REACTION?FORM STRENGTH: 10 MILLIGRAM/MILLILITERS
     Route: 042
  17. PRILOCAINE HYDROCHLORIDE [Concomitant]
     Active Substance: PRILOCAINE HYDROCHLORIDE
     Indication: Product used for unknown indication
     Dosage: TOPICAL CREAM 2.5% -2-5 % 2.5-2.5 % CREAM APPLY 30 MIN PRIOR TO EACH TX
     Route: 061
  18. DIPHENHYDRAMINE [Concomitant]
     Active Substance: DIPHENHYDRAMINE
     Indication: Hypersensitivity
     Dosage: IV 50 MG INTRAVENOUSLY AS NEEDED FOR HYPERSENSITIVITY REACTION.
     Route: 042
  19. EPINEPHRINE [Concomitant]
     Active Substance: EPINEPHRINE
     Indication: Hypersensitivity
     Dosage: FORM OF ADMIN: 1 MG/ML- (1 ML) SOLUTION, 0.3 MG INTRAMUSCULARLY ONCE AS NEEDED
     Route: 030
  20. VALACYCLOVIR [Concomitant]
     Active Substance: VALACYCLOVIR HYDROCHLORIDE
     Indication: Product used for unknown indication
     Dosage: 1 TABLET ORALLY 2 TIMES PER DAY.?FORM STRENGTH: 500 MILLIGRAM
     Route: 048
  21. ZOLMITRIPTAN [Concomitant]
     Active Substance: ZOLMITRIPTAN
     Indication: Headache
     Dosage: DISINTEGRATING TABLET 1 DOSE PK ORALLY AS DIRECTED ON DOSE PACK. TAKE 1 TAB AT ONSET OF HEADAC
     Route: 048
  22. AFRIN [Concomitant]
     Active Substance: OXYMETAZOLINE
     Indication: Product used for unknown indication
     Dosage: NASAL SPRAY 0.05 % PRN , OK TO USE PER LIZ-GIVEN BY ENT?FORM STRENGTH: 0.05 %
     Route: 045
  23. LIDOCAINE [Concomitant]
     Active Substance: LIDOCAINE
     Indication: Product used for unknown indication
     Dosage: TOPICAL CREAM 2.5 -2-5 % 2.5-2.5 % (CREAM APPLY 30 MIN PRIOR TO EACH TX
     Route: 061
  24. INFLUENZA VIRUS VACCINE [Concomitant]
     Active Substance: INFLUENZA VIRUS VACCINE
     Indication: Product used for unknown indication
     Dates: start: 200809, end: 200809

REACTIONS (9)
  - Neutropenia [Not Recovered/Not Resolved]
  - Fibromyalgia [Not Recovered/Not Resolved]
  - Off label use [Unknown]
  - Haematological neoplasm [Not Recovered/Not Resolved]
  - Headache [Not Recovered/Not Resolved]
  - Depression [Unknown]
  - Seizure [Unknown]
  - Thrombocytosis [Unknown]
  - Depression [Recovered/Resolved]

NARRATIVE: CASE EVENT DATE: 20220502
